FAERS Safety Report 20592856 (Version 2)
Quarter: 2022Q2

REPORT INFORMATION
  Report Type: Spontaneous
  Country: CO (occurrence: CO)
  Receive Date: 20220315
  Receipt Date: 20220414
  Transmission Date: 20220721
  Serious: Yes (Hospitalization, Other)
  Sender: FDA-Public Use
  Company Number: CO-PFIZER INC-202200359008

PATIENT
  Age: 56 Year
  Sex: Male

DRUGS (1)
  1. ENBREL [Suspect]
     Active Substance: ETANERCEPT
     Indication: Ankylosing spondylitis
     Dosage: 50 MG,  WEEKLY (EVERY 8 DAYS, ONE APPLICATION)
     Route: 058
     Dates: start: 2018

REACTIONS (1)
  - Prostatic operation [Recovering/Resolving]

NARRATIVE: CASE EVENT DATE: 20220302
